FAERS Safety Report 7865693-5 (Version None)
Quarter: 2011Q4

REPORT INFORMATION
  Report Type: 
  Country: None (occurrence: None)
  Receive Date: 20111028
  Receipt Date: 20110208
  Transmission Date: 20120403
  Serious: Yes (Hospitalization)
  Sender: FDA-Public Use
  Company Number: US-GLAXOSMITHKLINE-A0912503A

PATIENT
  Age: 67 Year
  Sex: Female

DRUGS (24)
  1. METOPROLOL TARTRATE [Concomitant]
  2. FUROSEMIDE [Concomitant]
  3. SLOW MAGNESIUM [Concomitant]
  4. METFORMIN HCL [Concomitant]
  5. GLYBURIDE [Concomitant]
  6. WARFARIN SODIUM [Concomitant]
  7. FISH OIL [Concomitant]
  8. NITROGLYCERIN [Concomitant]
  9. CO Q10 [Concomitant]
  10. ADVAIR DISKUS 100/50 [Suspect]
     Indication: CHRONIC OBSTRUCTIVE PULMONARY DISEASE
     Dosage: 1PUFF TWICE PER DAY
     Route: 055
  11. CARTIA XT [Concomitant]
  12. NEXIUM [Concomitant]
  13. NIACIN [Concomitant]
  14. SPIRIVA [Concomitant]
  15. XOPENEX [Concomitant]
  16. DIAZEPAM [Concomitant]
  17. MULTAQ [Concomitant]
  18. SIMVASTATIN [Concomitant]
  19. VERAPAMIL [Concomitant]
  20. CALCIUM CARBONATE [Concomitant]
  21. INSULIN [Concomitant]
     Route: 058
  22. ASPIRIN [Concomitant]
  23. HYDROCODONE BITARTRATE [Concomitant]
  24. MORPHINE [Concomitant]

REACTIONS (1)
  - PNEUMONIA [None]
